FAERS Safety Report 23951618 (Version 3)
Quarter: 2024Q2

REPORT INFORMATION
  Report Type: Spontaneous
  Country: JP (occurrence: None)
  Receive Date: 20240607
  Receipt Date: 20240618
  Transmission Date: 20240716
  Serious: Yes (Death)
  Sender: FDA-Public Use
  Company Number: 2024A131669

PATIENT
  Age: 69 Year
  Sex: Female

DRUGS (9)
  1. NEXIUM [Suspect]
     Active Substance: ESOMEPRAZOLE MAGNESIUM
     Route: 048
  2. SULFAMETHOXAZOLE\TRIMETHOPRIM [Suspect]
     Active Substance: SULFAMETHOXAZOLE\TRIMETHOPRIM
     Indication: Pneumocystis jirovecii pneumonia
     Route: 048
  3. AZELNIDIPINE [Concomitant]
     Active Substance: AZELNIDIPINE
     Indication: Autoimmune hepatitis
     Dosage: SINCE THE AGE OF 60, NUMBER OF SEPARATE DOSAGES UNKNOWN
  4. EZETIMIBE [Concomitant]
     Active Substance: EZETIMIBE
     Dosage: SINCE THE AGE OF 60, DOSE UNKNOWN
  5. TOFOGLIFLOZIN HYDRATE [Concomitant]
     Dosage: SINCE THE AGE OF 60, DOSE UNKNOWN
  6. PREDNISOLONE [Concomitant]
     Active Substance: PREDNISOLONE
     Indication: Autoimmune hepatitis
     Dosage: NUMBER OF SEPARATE DOSAGES UNKNOWN
  7. PREDNISOLONE [Concomitant]
     Active Substance: PREDNISOLONE
     Indication: Autoimmune hepatitis
     Dosage: NUMBER OF SEPARATE DOSAGES UNKNOWN
     Route: 065
  8. PREDNISOLONE [Concomitant]
     Active Substance: PREDNISOLONE
     Indication: Autoimmune hepatitis
     Dosage: NUMBER OF SEPARATE DOSAGES UNKNOWN
     Route: 065
  9. AZATHIOPRINE [Concomitant]
     Active Substance: AZATHIOPRINE
     Dosage: DOSE UNKNOWN

REACTIONS (2)
  - Drug reaction with eosinophilia and systemic symptoms [Fatal]
  - Nervous system disorder [Fatal]
